FAERS Safety Report 11024122 (Version 1)
Quarter: 2015Q2

REPORT INFORMATION
  Report Type: Spontaneous
  Country: IL (occurrence: IL)
  Receive Date: 20150413
  Receipt Date: 20150413
  Transmission Date: 20150821
  Serious: Yes (Death, Other)
  Sender: FDA-Public Use
  Company Number: PHHY2015IL042486

PATIENT
  Age: 20 Year
  Sex: Male

DRUGS (1)
  1. GLIVEC [Suspect]
     Active Substance: IMATINIB MESYLATE
     Indication: PHAEOCHROMOCYTOMA
     Route: 065

REACTIONS (5)
  - Post procedural sepsis [Fatal]
  - Drug ineffective [Unknown]
  - Phaeochromocytoma [Unknown]
  - Malignant neoplasm progression [Unknown]
  - Product use issue [Unknown]
